FAERS Safety Report 19421054 (Version 2)
Quarter: 2022Q1

REPORT INFORMATION
  Report Type: Spontaneous
  Country: US (occurrence: US)
  Receive Date: 20210615
  Receipt Date: 20220223
  Transmission Date: 20220423
  Serious: No
  Sender: FDA-Public Use
  Company Number: US-PFIZER INC-2021415749

PATIENT
  Age: 64 Year
  Sex: Female

DRUGS (2)
  1. XELJANZ XR [Suspect]
     Active Substance: TOFACITINIB CITRATE
     Dosage: 11 MG
     Dates: start: 20210212
  2. XELJANZ XR [Suspect]
     Active Substance: TOFACITINIB CITRATE
     Dosage: 11 MG
     Dates: start: 20210309, end: 20210411

REACTIONS (6)
  - Blood pressure increased [Unknown]
  - Nosocomial infection [Unknown]
  - Blood cholesterol increased [Unknown]
  - Headache [Unknown]
  - Abdominal pain upper [Unknown]
  - Back pain [Unknown]

NARRATIVE: CASE EVENT DATE: 20210101
